FAERS Safety Report 17507573 (Version 1)
Quarter: 2020Q1

REPORT INFORMATION
  Report Type: Spontaneous
  Country: US (occurrence: US)
  Receive Date: 20200306
  Receipt Date: 20200306
  Transmission Date: 20200409
  Serious: No
  Sender: FDA-Public Use
  Company Number: US-AUROBINDO-AUR-APL-2020-001773

PATIENT

DRUGS (2)
  1. LEVETIRACETAM 1000MG [Suspect]
     Active Substance: LEVETIRACETAM
     Dosage: 500 MILLIGRAM, ONCE A DAY
     Route: 065
  2. LEVETIRACETAM 1000MG [Suspect]
     Active Substance: LEVETIRACETAM
     Indication: PRODUCT USED FOR UNKNOWN INDICATION
     Dosage: 1000 MILLIGRAM, ONCE A DAY
     Route: 065

REACTIONS (4)
  - Dizziness [Unknown]
  - Myalgia [Unknown]
  - Drug intolerance [Unknown]
  - Cough [Unknown]
